FAERS Safety Report 12278842 (Version 4)
Quarter: 2016Q3

REPORT INFORMATION
  Report Type: Report from Study
  Country: US (occurrence: US)
  Receive Date: 20160418
  Receipt Date: 20160705
  Transmission Date: 20161109
  Serious: Yes (Hospitalization, Other)
  Sender: FDA-Public Use
  Company Number: US-AMGEN-USASL2016045860

PATIENT
  Age: 33 Year
  Sex: Female

DRUGS (2)
  1. ENBREL [Suspect]
     Active Substance: ETANERCEPT
     Dosage: 50 MG, 2 TIMES/WK
     Route: 065
     Dates: start: 201512
  2. ENBREL [Suspect]
     Active Substance: ETANERCEPT
     Indication: PSORIASIS
     Dosage: 50 MG, QWK
     Route: 065
     Dates: start: 2013

REACTIONS (10)
  - Cellulitis [Unknown]
  - Vaginal haemorrhage [Unknown]
  - Hospitalisation [Unknown]
  - Peripheral venous disease [Unknown]
  - Mental disorder [Unknown]
  - Sepsis [Unknown]
  - Maternal exposure during pregnancy [Recovered/Resolved]
  - Psoriasis [Not Recovered/Not Resolved]
  - Cervix cerclage procedure [Unknown]
  - Off label use [Recovered/Resolved]

NARRATIVE: CASE EVENT DATE: 2015
